FAERS Safety Report 7591358-3 (Version None)
Quarter: 2011Q3

REPORT INFORMATION
  Report Type: 
  Country: None (occurrence: None)
  Receive Date: 20110706
  Receipt Date: 20110627
  Transmission Date: 20111222
  Serious: No
  Sender: FDA-Public Use
  Company Number: US-BIOGENIDEC-2011BI023978

PATIENT
  Sex: Female

DRUGS (1)
  1. TYSABRI [Suspect]
     Indication: MULTIPLE SCLEROSIS
     Route: 042
     Dates: start: 20081218

REACTIONS (6)
  - PARAESTHESIA [None]
  - DEPRESSION [None]
  - URINARY INCONTINENCE [None]
  - FAECAL INCONTINENCE [None]
  - HYPOAESTHESIA [None]
  - HYPOAESTHESIA ORAL [None]
